FAERS Safety Report 12625673 (Version 1)
Quarter: 2016Q3

REPORT INFORMATION
  Report Type: Spontaneous
  Country: US (occurrence: US)
  Receive Date: 20160805
  Receipt Date: 20160805
  Transmission Date: 20161109
  Serious: No
  Sender: FDA-Public Use
  Company Number: US-GLAXOSMITHKLINE-US2016113181

PATIENT
  Age: 70 Year
  Sex: Male

DRUGS (1)
  1. VOLTAREN [Suspect]
     Active Substance: DICLOFENAC SODIUM
     Indication: RIB FRACTURE
     Dosage: UNK
     Dates: start: 20160722

REACTIONS (4)
  - Back disorder [Unknown]
  - Drug administered at inappropriate site [Unknown]
  - Off label use [Unknown]
  - Therapeutic response unexpected [Unknown]
